FAERS Safety Report 7003503-9 (Version None)
Quarter: 2010Q3

REPORT INFORMATION
  Report Type: 
  Country: None (occurrence: None)
  Receive Date: 20100916
  Receipt Date: 20100901
  Transmission Date: 20110219
  Serious: Yes (Death)
  Sender: FDA-Public Use
  Company Number: AUR-APL-2010-02070

PATIENT
  Age: 47 Year
  Sex: Male

DRUGS (2)
  1. PAROXETINE [Suspect]
     Dosage: 60MG, DAILY
     Dates: start: 20050805, end: 20100318
  2. ZAPONEX [Suspect]
     Dosage: 250MG, ORAL
     Route: 048
     Dates: start: 20050805, end: 20100318

REACTIONS (5)
  - ANTIDEPRESSANT DRUG LEVEL INCREASED [None]
  - ANTIPSYCHOTIC DRUG LEVEL INCREASED [None]
  - CONDITION AGGRAVATED [None]
  - CORONARY ARTERY DISEASE [None]
  - FALL [None]
